FAERS Safety Report 8520289-7 (Version None)
Quarter: 2012Q3

REPORT INFORMATION
  Report Type: 
  Country: None (occurrence: None)
  Receive Date: 20120713
  Receipt Date: 20120713
  Transmission Date: 20120928
  Serious: No
  Sender: FDA-Public Use
  Company Number: None

PATIENT
  Age: 47 Year
  Sex: Female

DRUGS (1)
  1. QUETIAPINE [Suspect]
     Dosage: 50MG TID PO
     Route: 048
     Dates: start: 20120416, end: 20120621

REACTIONS (4)
  - PRODUCT SUBSTITUTION ISSUE [None]
  - ANXIETY [None]
  - FORMICATION [None]
  - INSOMNIA [None]
